FAERS Safety Report 6369671-7 (Version None)
Quarter: 2009Q3

REPORT INFORMATION
  Report Type: 
  Country: None (occurrence: None)
  Receive Date: 20090918
  Receipt Date: 20090904
  Transmission Date: 20100115
  Serious: No
  Sender: FDA-Public Use
  Company Number: 8051702

PATIENT

DRUGS (2)
  1. KEPPRA XR [Suspect]
     Dosage: 2500 MG PO
     Route: 048
     Dates: start: 20090903
  2. KEPPRA [Suspect]

REACTIONS (1)
  - NO ADVERSE EVENT [None]
